FAERS Safety Report 6596594-0 (Version None)
Quarter: 2010Q1

REPORT INFORMATION
  Report Type: 
  Country: None (occurrence: None)
  Receive Date: 20100212
  Receipt Date: 20100120
  Transmission Date: 20100710
  Serious: No
  Sender: FDA-Public Use
  Company Number: 2010-00070

PATIENT
  Age: 28 Year
  Sex: Male
  Weight: 115.6672 kg

DRUGS (1)
  1. EXTREME CONGESTION NASAL GEL [Suspect]
     Dosage: QD, ONE DOSE
     Dates: start: 20100116, end: 20100116

REACTIONS (1)
  - ANOSMIA [None]
